FAERS Safety Report 24320133 (Version 3)
Quarter: 2024Q3

REPORT INFORMATION
  Report Type: Spontaneous
  Country: US (occurrence: US)
  Receive Date: 20240914
  Receipt Date: 20240918
  Transmission Date: 20241016
  Serious: No
  Sender: AMGEN
  Company Number: US-AMGEN-USASP2024182719

PATIENT
  Sex: Male

DRUGS (1)
  1. NPLATE [Suspect]
     Active Substance: ROMIPLOSTIM
     Indication: Thrombocytopenia
     Dosage: DOSE ORDERED: 3X 125MCG VIALS, DOSE REQUESTED: 3X 125MCG VIALS
     Route: 065

REACTIONS (1)
  - Unevaluable event [Unknown]
